FAERS Safety Report 16469133 (Version 1)
Quarter: 2019Q2

REPORT INFORMATION
  Report Type: Spontaneous
  Country: US (occurrence: US)
  Receive Date: 20190514
  Receipt Date: 20190514
  Transmission Date: 20190711
  Serious: No
  Sender: FDA-Public Use
  Company Number: None

PATIENT
  Age: 62 Year
  Sex: Female
  Weight: 102.51 kg

DRUGS (1)
  1. REPATHA [Suspect]
     Active Substance: EVOLOCUMAB
     Indication: HYPERLIPIDAEMIA
     Dosage: ADMINISTER 3.5 ML SUBCUTANEOUS EVERY MONTH OVER 9 MINUTE  S BY USING THE SINGLE -USE ON - BODY INFUSER
     Route: 058
     Dates: start: 201901

REACTIONS (2)
  - Therapy cessation [None]
  - Liver disorder [None]
